FAERS Safety Report 6615090-5 (Version None)
Quarter: 2010Q1

REPORT INFORMATION
  Report Type: 
  Country: None (occurrence: None)
  Receive Date: 20100226
  Receipt Date: 20100212
  Transmission Date: 20100710
  Serious: Yes (Death, Hospitalization)
  Sender: FDA-Public Use
  Company Number: 007259

PATIENT
  Age: 57 Year
  Sex: Female

DRUGS (2)
  1. PREDNISOLONE [Suspect]
     Indication: SYSTEMIC LUPUS ERYTHEMATOSUS
     Dosage: 10 MG DAILY
  2. AZATHIOPRINE [Suspect]
     Indication: SYSTEMIC LUPUS ERYTHEMATOSUS

REACTIONS (7)
  - CAMPYLOBACTER GASTROENTERITIS [None]
  - CUTANEOUS VASCULITIS [None]
  - GASTROENTERITIS PSEUDOMONAS [None]
  - LUPUS NEPHRITIS [None]
  - PNEUMONIA [None]
  - PSEUDOMONAL SEPSIS [None]
  - URINARY TRACT INFECTION [None]
